FAERS Safety Report 11977914 (Version 3)
Quarter: 2016Q1

REPORT INFORMATION
  Report Type: Spontaneous
  Country: DK (occurrence: DK)
  Receive Date: 20160129
  Receipt Date: 20160205
  Transmission Date: 20160526
  Serious: Yes (Life-Threatening, Hospitalization, Disabling)
  Sender: FDA-Public Use
  Company Number: PHHY2016DK007501

PATIENT
  Age: 41 Year
  Sex: Female

DRUGS (6)
  1. MAGNYL                             /00228701/ [Concomitant]
     Indication: PRODUCT USED FOR UNKNOWN INDICATION
     Route: 065
  2. METOPROLOLSUCCINAT HEXAL [Suspect]
     Active Substance: METOPROLOL SUCCINATE
     Indication: ARRHYTHMIA
     Route: 048
  3. CYTOTEC [Suspect]
     Active Substance: MISOPROSTOL
     Dosage: DOSIS: 3 TABL ENGANGSDOSIS.STYRKE: 0,2 MG.
     Route: 048
     Dates: start: 20160112
  4. CYTOTEC [Suspect]
     Active Substance: MISOPROSTOL
     Indication: ABORTION
     Dosage: 3 TABLETS, ONETIME DOSE, STRENGTH 0.2 MG
     Route: 048
     Dates: start: 20160112
  5. LERCANIDIPINE HCL ACTAVIS [Suspect]
     Active Substance: LERCANIDIPINE HYDROCHLORIDE
     Indication: HYPERTENSION
     Route: 048
  6. IMIGRAN//SUMATRIPTAN SUCCINATE [Concomitant]
     Active Substance: SUMATRIPTAN SUCCINATE
     Indication: MIGRAINE
     Dosage: DOSAGE: WHEN NEEDED
     Route: 065

REACTIONS (11)
  - Arteriospasm coronary [Unknown]
  - Ventricular tachycardia [Recovering/Resolving]
  - Stress cardiomyopathy [Unknown]
  - Chest pain [Unknown]
  - Ventricular hypokinesia [Unknown]
  - Cardiac arrest [Recovered/Resolved with Sequelae]
  - Ejection fraction decreased [Recovering/Resolving]
  - Torsade de pointes [Unknown]
  - Loss of consciousness [Recovered/Resolved]
  - Bundle branch block right [Recovered/Resolved]
  - Product use issue [Recovered/Resolved]

NARRATIVE: CASE EVENT DATE: 20160112
